FAERS Safety Report 7680911-4 (Version None)
Quarter: 2011Q3

REPORT INFORMATION
  Report Type: 
  Country: None (occurrence: None)
  Receive Date: 20110812
  Receipt Date: 20110804
  Transmission Date: 20111222
  Serious: Yes (Hospitalization)
  Sender: FDA-Public Use
  Company Number: US-ASTRAZENECA-2011SE46960

PATIENT
  Age: 60 Year
  Sex: Female

DRUGS (1)
  1. SYMBICORT [Suspect]
     Route: 055

REACTIONS (4)
  - RESPIRATORY FAILURE [None]
  - PNEUMONIA [None]
  - CYANOSIS [None]
  - OXYGEN SATURATION ABNORMAL [None]
